FAERS Safety Report 9850821 (Version 3)
Quarter: 2014Q1

REPORT INFORMATION
  Report Type: Report from Study
  Country: BR (occurrence: BR)
  Receive Date: 20140128
  Receipt Date: 20140220
  Transmission Date: 20141002
  Serious: Yes (Death, Hospitalization, Other)
  Sender: FDA-Public Use
  Company Number: BR-BRISTOL-MYERS SQUIBB COMPANY-19507789

PATIENT
  Age: 59 Year
  Sex: Male

DRUGS (3)
  1. BELATACEPT [Suspect]
     Indication: RENAL TRANSPLANT
     Route: 042
     Dates: start: 20070221, end: 20130927
  2. MYCOPHENOLATE MOFETIL [Suspect]
     Dosage: 21FEB2007-11OCT2013-2GM/DAILY?12OCT2013-17JAN14, 1GM/DAILY
     Dates: start: 20070221
  3. PREDNISONE [Suspect]
     Dates: start: 20070907, end: 20140117

REACTIONS (1)
  - Pancreatic neoplasm [Fatal]
